FAERS Safety Report 4607771-X (Version None)
Quarter: 2005Q1

REPORT INFORMATION
  Report Type: 
  Country: None (occurrence: None)
  Receive Date: 20050314
  Receipt Date: 20050305
  Transmission Date: 20050727
  Serious: Yes (Hospitalization)
  Sender: FDA-Public Use
  Company Number: 12799326

PATIENT
  Age: 64 Year
  Sex: Female
  Weight: 48 kg

DRUGS (4)
  1. AMOXICILLIN [Suspect]
     Indication: LOWER RESPIRATORY TRACT INFECTION
     Dosage: 500MG PER DAY
     Route: 048
     Dates: start: 20041203, end: 20041205
  2. ABILIFY [Suspect]
     Indication: SCHIZOPHRENIA
     Dosage: 15MG PER DAY
     Route: 048
     Dates: start: 20041110, end: 20050203
  3. FLUPENTHIXOL DECANOATE [Concomitant]
     Indication: SCHIZOPHRENIA
     Dosage: 200MG WEEKLY
     Route: 030
  4. LORAZEPAM [Concomitant]
     Dosage: .5MG PER DAY
     Route: 048

REACTIONS (9)
  - CONFUSIONAL STATE [None]
  - EMOTIONAL DISTRESS [None]
  - GENERAL PHYSICAL HEALTH DETERIORATION [None]
  - HALLUCINATION, AUDITORY [None]
  - HEAD BANGING [None]
  - LIVER FUNCTION TEST ABNORMAL [None]
  - LOWER RESPIRATORY TRACT INFECTION [None]
  - MALAISE [None]
  - RASH [None]
